FAERS Safety Report 7693706-2 (Version None)
Quarter: 2011Q3

REPORT INFORMATION
  Report Type: 
  Country: None (occurrence: None)
  Receive Date: 20110819
  Receipt Date: 20110810
  Transmission Date: 20111222
  Serious: Yes (Other)
  Sender: FDA-Public Use
  Company Number: CA-JNJFOC-20110806232

PATIENT
  Sex: Female
  Weight: 76 kg

DRUGS (4)
  1. REMICADE [Suspect]
     Indication: PSORIASIS
     Route: 042
  2. PAXIL [Concomitant]
  3. METHOTREXATE [Concomitant]
  4. SYNTHROID [Concomitant]

REACTIONS (1)
  - LACERATION [None]
